FAERS Safety Report 8340690-4 (Version None)
Quarter: 2012Q2

REPORT INFORMATION
  Report Type: 
  Country: None (occurrence: None)
  Receive Date: 20120507
  Receipt Date: 20120501
  Transmission Date: 20120825
  Serious: Yes (Death)
  Sender: FDA-Public Use
  Company Number: US-CELGENEUS-163-21880-12050145

PATIENT
  Sex: Male
  Weight: 81.72 kg

DRUGS (9)
  1. AMBIEN [Concomitant]
     Dosage: 5 MILLIGRAM
     Route: 065
  2. CARTIA XT [Concomitant]
     Dosage: 120 MILLIGRAM
     Route: 065
  3. DOXAZOSIN MESYLATE [Concomitant]
     Dosage: 4 MILLIGRAM
     Route: 065
  4. CLARITIN [Concomitant]
     Dosage: 10 MILLIGRAM
     Route: 065
  5. FUROSEMIDE [Concomitant]
     Dosage: 20 MILLIGRAM
     Route: 065
  6. REVLIMID [Suspect]
     Indication: MULTIPLE MYELOMA
     Dosage: 5 MILLIGRAM
     Route: 048
     Dates: start: 20120217, end: 20120412
  7. CLONIDINE [Concomitant]
     Dosage: .2 MILLIGRAM
     Route: 065
  8. HYDRALAZINE HCL [Concomitant]
     Dosage: 100 MILLIGRAM
     Route: 065
  9. ACYCLOVIR [Concomitant]
     Dosage: 400 MILLIGRAM
     Route: 065

REACTIONS (1)
  - DEATH [None]
